FAERS Safety Report 10727561 (Version 1)
Quarter: 2015Q1

REPORT INFORMATION
  Report Type: Spontaneous
  Country: US (occurrence: US)
  Receive Date: 20150121
  Receipt Date: 20150121
  Transmission Date: 20150721
  Serious: No
  Sender: FDA-Public Use
  Company Number: US-GILEAD-2015-0132556

PATIENT
  Age: 63 Year
  Sex: Female

DRUGS (13)
  1. TYVASO [Concomitant]
     Active Substance: TREPROSTINIL
  2. LETAIRIS [Suspect]
     Active Substance: AMBRISENTAN
     Indication: COR PULMONALE CHRONIC
     Dosage: 10 MG, QD
     Route: 065
     Dates: start: 20140122
  3. POTASSIUM [Concomitant]
     Active Substance: POTASSIUM
  4. AMLODIPINE [Concomitant]
     Active Substance: AMLODIPINE BESYLATE
  5. NEXIUM [Concomitant]
     Active Substance: ESOMEPRAZOLE MAGNESIUM
  6. AZATHIOPRINE. [Concomitant]
     Active Substance: AZATHIOPRINE
  7. PHENYTOIN. [Concomitant]
     Active Substance: PHENYTOIN
  8. DIGOXIN. [Concomitant]
     Active Substance: DIGOXIN
  9. LEVOTHYROXINE [Concomitant]
     Active Substance: LEVOTHYROXINE
  10. OXYGEN. [Concomitant]
     Active Substance: OXYGEN
  11. PREDNISONE. [Concomitant]
     Active Substance: PREDNISONE
  12. FUROSEMIDE. [Concomitant]
     Active Substance: FUROSEMIDE
  13. REVATIO [Concomitant]
     Active Substance: SILDENAFIL CITRATE

REACTIONS (3)
  - Sinusitis [Not Recovered/Not Resolved]
  - Epistaxis [Not Recovered/Not Resolved]
  - Nasal congestion [Not Recovered/Not Resolved]

NARRATIVE: CASE EVENT DATE: 20141214
